FAERS Safety Report 23135161 (Version 1)
Quarter: 2023Q4

REPORT INFORMATION
  Report Type: Other
  Country: CN (occurrence: CN)
  Receive Date: 20231101
  Receipt Date: 20231101
  Transmission Date: 20240109
  Serious: Yes (Life-Threatening, Other)
  Sender: FDA-Public Use
  Company Number: CN-GE HEALTHCARE-2023CSU009730

PATIENT
  Age: 69 Year
  Sex: Female
  Weight: 50 kg

DRUGS (6)
  1. OMNIPAQUE [Suspect]
     Active Substance: IOHEXOL
     Indication: Imaging procedure
     Dosage: 35 GM, SINGLE
     Route: 042
     Dates: start: 20231024, end: 20231024
  2. OMNIPAQUE [Suspect]
     Active Substance: IOHEXOL
     Indication: Chemotherapy
  3. OMNIPAQUE [Suspect]
     Active Substance: IOHEXOL
     Indication: Neoplasm malignant
  4. OMNIPAQUE [Suspect]
     Active Substance: IOHEXOL
     Indication: Squamous cell carcinoma of lung
  5. OMNIPAQUE [Suspect]
     Active Substance: IOHEXOL
     Indication: Metastases to lymph nodes
  6. OMNIPAQUE [Suspect]
     Active Substance: IOHEXOL
     Indication: Metastases to lung

REACTIONS (5)
  - Oxygen saturation decreased [Recovering/Resolving]
  - Dyspnoea [Recovering/Resolving]
  - Delirium [Recovering/Resolving]
  - Dysphoria [Recovering/Resolving]
  - Palpitations [Recovering/Resolving]

NARRATIVE: CASE EVENT DATE: 20231024
